FAERS Safety Report 4556679-7 (Version None)
Quarter: 2005Q1

REPORT INFORMATION
  Report Type: 
  Country: None (occurrence: None)
  Receive Date: 20050120
  Receipt Date: 20041214
  Transmission Date: 20050727
  Serious: Yes (Other)
  Sender: FDA-Public Use
  Company Number: HQWYE982615DEC04

PATIENT
  Age: 6 Year
  Sex: Male

DRUGS (2)
  1. ENBREL [Suspect]
     Indication: JUVENILE ARTHRITIS
     Dosage: 0.4 MG/KG TWICE WEEKLY
  2. ENBREL [Suspect]
     Dosage: 0.4 MG/KG TWICE WEEKLY

REACTIONS (10)
  - ANAL FISTULA [None]
  - CONDITION AGGRAVATED [None]
  - CROHN'S DISEASE [None]
  - DUODENITIS [None]
  - FISTULA [None]
  - GASTRITIS [None]
  - ILEAL ULCER [None]
  - JUVENILE ARTHRITIS [None]
  - PERIANAL ABSCESS [None]
  - WEIGHT DECREASED [None]
